FAERS Safety Report 9541669 (Version 1)
Quarter: 2013Q2

REPORT INFORMATION
  Report Type: Spontaneous
  Country: US (occurrence: None)
  Receive Date: 20130524
  Receipt Date: 20130524
  Transmission Date: 20140414
  Serious: Yes (Other)
  Sender: FDA-Public Use
  Company Number: PHEH2013US000461

PATIENT
  Age: 40 Year
  Sex: Female

DRUGS (3)
  1. GILENYA [Suspect]
     Indication: MULTIPLE SCLEROSIS
     Route: 048
     Dates: start: 20111018
  2. AMPYRA (FAMPRIDINE) TABLET, 10MG [Concomitant]
  3. HYDROCHLOORTHIAZIDE (HYDROCHLOROTHIAZIDE) [Concomitant]

REACTIONS (1)
  - Rash [None]
